FAERS Safety Report 9681472 (Version 1)
Quarter: 2013Q4

REPORT INFORMATION
  Report Type: Spontaneous
  Country: FR (occurrence: FR)
  Receive Date: 20131111
  Receipt Date: 20131111
  Transmission Date: 20140711
  Serious: Yes (Other)
  Sender: FDA-Public Use
  Company Number: FR-BRISTOL-MYERS SQUIBB COMPANY-19732270

PATIENT
  Age: 60 Year
  Sex: 0
  Weight: 82 kg

DRUGS (3)
  1. REYATAZ [Suspect]
     Indication: HIV INFECTION
     Dosage: 06FEB2013- 1DF
     Dates: start: 20100923
  2. NORVIR [Suspect]
     Indication: HIV INFECTION
     Dosage: 06FEB13- 1DF
     Dates: start: 20100923
  3. TRUVADA [Suspect]
     Indication: HIV INFECTION
     Dosage: 6FEB2013- 1 DF
     Route: 048
     Dates: start: 20100923

REACTIONS (3)
  - Overdose [Unknown]
  - Creatinine renal clearance decreased [Recovered/Resolved]
  - Proteinuria [Recovered/Resolved]
